FAERS Safety Report 7247982-0 (Version None)
Quarter: 2011Q1

REPORT INFORMATION
  Report Type: 
  Country: None (occurrence: None)
  Receive Date: 20110127
  Receipt Date: 20110124
  Transmission Date: 20110831
  Serious: Yes (Hospitalization, Other)
  Sender: FDA-Public Use
  Company Number: NL-ROXANE LABORATORIES, INC.-2011-RO-00093RO

PATIENT
  Age: 84 Year
  Sex: Male

DRUGS (7)
  1. ACENOCOUMAROL [Suspect]
  2. PREDNISONE [Suspect]
     Indication: PROSTATE CANCER
     Dosage: 10 MG
  3. DOCETAXEL [Suspect]
     Indication: METASTASES TO BONE
  4. FENTANYL [Suspect]
     Indication: BONE PAIN
     Route: 062
  5. DOCETAXEL [Suspect]
     Indication: PROSTATE CANCER
  6. SOTALOL [Suspect]
     Dosage: 80 MG
  7. PREDNISONE [Suspect]
     Indication: METASTASES TO BONE

REACTIONS (3)
  - ENCEPHALITIS VIRAL [None]
  - HERPES ZOSTER [None]
  - NEUTROPENIA [None]
